FAERS Safety Report 12173427 (Version 2)
Quarter: 2016Q1

REPORT INFORMATION
  Report Type: Spontaneous
  Country: US (occurrence: US)
  Receive Date: 20160311
  Receipt Date: 20160317
  Transmission Date: 20160526
  Serious: No
  Sender: FDA-Public Use
  Company Number: US-GALDERMA-US15009192

PATIENT
  Age: 43 Year
  Sex: Female

DRUGS (5)
  1. UNKNOWN MAKEUP [Concomitant]
     Route: 061
  2. SOLODYN [Concomitant]
     Active Substance: MINOCYCLINE HYDROCHLORIDE
     Indication: ROSACEA
     Dates: start: 201505
  3. PONDS CLEANSING CREAM [Concomitant]
     Indication: THERAPEUTIC SKIN CARE TOPICAL
     Route: 061
  4. BETA CAROTENE [Concomitant]
     Indication: ROSACEA
     Dates: start: 201505
  5. TRI-LUMA [Suspect]
     Active Substance: FLUOCINOLONE ACETONIDE\HYDROQUINONE\TRETINOIN
     Indication: PIGMENTATION DISORDER
     Route: 061
     Dates: start: 20151219, end: 20151220

REACTIONS (3)
  - Application site erythema [Recovered/Resolved]
  - Skin irritation [Recovered/Resolved]
  - Skin warm [Recovered/Resolved]

NARRATIVE: CASE EVENT DATE: 20151220
